FAERS Safety Report 5267002-7 (Version None)
Quarter: 2007Q1

REPORT INFORMATION
  Report Type: 
  Country: None (occurrence: None)
  Receive Date: 20070316
  Receipt Date: 20070305
  Transmission Date: 20070707
  Serious: Yes (Hospitalization)
  Sender: FDA-Public Use
  Company Number: PHBS2007PH03748

PATIENT
  Age: 25 Year
  Sex: Male

DRUGS (1)
  1. TRILEPTAL [Suspect]
     Dosage: 300 MG
     Route: 048

REACTIONS (4)
  - LIP DRY [None]
  - MOUTH ULCERATION [None]
  - PHARYNGOLARYNGEAL PAIN [None]
  - RASH [None]
